FAERS Safety Report 16405199 (Version 1)
Quarter: 2019Q2

REPORT INFORMATION
  Report Type: Spontaneous
  Country: US (occurrence: US)
  Receive Date: 20190502
  Receipt Date: 20190502
  Transmission Date: 20190711
  Serious: Yes (Other)
  Sender: FDA-Public Use
  Company Number: None

PATIENT
  Age: 50 Year
  Sex: Male
  Weight: 174.18 kg

DRUGS (20)
  1. GENERIC ALBUTEROL [Suspect]
     Active Substance: ALBUTEROL SULFATE
     Indication: ASTHMA
     Dosage: ?          OTHER FREQUENCY:EVERY4HRS;?
     Route: 055
  2. ACCU-CHEK FASTCLIX LANCETS MISC [Concomitant]
  3. ZOLOFT [Concomitant]
     Active Substance: SERTRALINE HYDROCHLORIDE
  4. B-D INS SYR ULTRAFINE [Concomitant]
  5. TOPAMAX [Concomitant]
     Active Substance: TOPIRAMATE
  6. SYMBICORT [Concomitant]
     Active Substance: BUDESONIDE\FORMOTEROL FUMARATE DIHYDRATE
  7. CPAP SUPPLIES [Concomitant]
  8. ZANAFLEX [Concomitant]
     Active Substance: TIZANIDINE HYDROCHLORIDE
  9. ACCU-CHEK SMARTVIEW STRIP [Concomitant]
  10. DICLOFENAC (VOLTAREN) [Concomitant]
  11. LISINOPRIL (PRINIVIL,ZESTRIL) [Concomitant]
  12. ZOCOR [Concomitant]
     Active Substance: SIMVASTATIN
  13. GLUCOPHAGE [Concomitant]
     Active Substance: METFORMIN HYDROCHLORIDE
  14. ONDANSETRON (ZOFRAN-ODT) [Concomitant]
  15. INSULIN LISPRO PROT + LISPRO (HUMALOG MIX 75/25) [Concomitant]
  16. SINGULAIR [Concomitant]
     Active Substance: MONTELUKAST SODIUM
  17. VENTOLIN HFA [Concomitant]
     Active Substance: ALBUTEROL SULFATE
  18. VENTOLIN HFA [Concomitant]
     Active Substance: ALBUTEROL SULFATE
  19. CPAP MASK AND SUPPLIES [Concomitant]
  20. JANUVIA [Concomitant]
     Active Substance: SITAGLIPTIN PHOSPHATE

REACTIONS (3)
  - Drug ineffective [None]
  - Product substitution issue [None]
  - Extra dose administered [None]

NARRATIVE: CASE EVENT DATE: 20190424
